FAERS Safety Report 5990131-7 (Version None)
Quarter: 2008Q4

REPORT INFORMATION
  Report Type: 
  Country: None (occurrence: None)
  Receive Date: 20081209
  Receipt Date: 20081124
  Transmission Date: 20090506
  Serious: Yes (Death, Other)
  Sender: FDA-Public Use
  Company Number: 037701

PATIENT

DRUGS (6)
  1. ALPRAZOLAM [Suspect]
  2. DIAZEPAM [Suspect]
  3. FENTANYL CITRATE [Suspect]
  4. MORPHINE [Suspect]
  5. CLENBUTEROL(CLENBUTEROL) [Suspect]
  6. HEROIN(DIAMORPHINE) [Suspect]

REACTIONS (6)
  - CARDIOMYOPATHY [None]
  - DRUG ABUSER [None]
  - HEPATOSPLENOMEGALY [None]
  - PULMONARY CONGESTION [None]
  - PULMONARY OEDEMA [None]
  - UNRESPONSIVE TO STIMULI [None]
